FAERS Safety Report 13252716 (Version 2)
Quarter: 2017Q1

REPORT INFORMATION
  Report Type: Spontaneous
  Country: GB (occurrence: GB)
  Receive Date: 20170220
  Receipt Date: 20170329
  Transmission Date: 20170428
  Serious: Yes (Hospitalization, Other)
  Sender: FDA-Public Use
  Company Number: GB-BAYER-2017-028088

PATIENT
  Age: 49 Year
  Sex: Female
  Weight: 48.6 kg

DRUGS (1)
  1. MIRENA [Suspect]
     Active Substance: LEVONORGESTREL
     Indication: MENORRHAGIA
     Dosage: 20 MCG/24HR, CONT
     Route: 015
     Dates: start: 20120512, end: 20170310

REACTIONS (5)
  - Amenorrhoea [None]
  - Pyelonephritis [Recovered/Resolved with Sequelae]
  - Renal colic [Recovered/Resolved with Sequelae]
  - Stag horn calculus [Recovered/Resolved with Sequelae]
  - Renal failure [Recovered/Resolved with Sequelae]

NARRATIVE: CASE EVENT DATE: 201206
